FAERS Safety Report 19720998 (Version 1)
Quarter: 2021Q3

REPORT INFORMATION
  Report Type: Spontaneous
  Country: US (occurrence: US)
  Receive Date: 20210819
  Receipt Date: 20210819
  Transmission Date: 20211014
  Serious: Yes (Disabling, Other)
  Sender: FDA-Public Use
  Company Number: None

PATIENT
  Age: 67 Year
  Sex: Male
  Weight: 74.25 kg

DRUGS (2)
  1. CIPROFLOXACIN. [Suspect]
     Active Substance: CIPROFLOXACIN
     Indication: PROSTATITIS
     Route: 048
     Dates: start: 20150204, end: 20150225
  2. MAGNESIUM [Concomitant]
     Active Substance: MAGNESIUM

REACTIONS (9)
  - Loss of consciousness [None]
  - Muscular weakness [None]
  - Nightmare [None]
  - Decreased interest [None]
  - Toxicity to various agents [None]
  - Tendonitis [None]
  - Depression [None]
  - Suicidal ideation [None]
  - Fall [None]

NARRATIVE: CASE EVENT DATE: 20150513
